FAERS Safety Report 5473808-1 (Version None)
Quarter: 2007Q4

REPORT INFORMATION
  Report Type: 
  Country: None (occurrence: None)
  Receive Date: 20071001
  Receipt Date: 20070814
  Transmission Date: 20080405
  Serious: Yes (Other)
  Sender: FDA-Public Use
  Company Number: DE-GILEAD-2006-0010066

PATIENT
  Sex: Female
  Weight: 85 kg

DRUGS (8)
  1. VIREAD [Suspect]
     Indication: HIV INFECTION
     Route: 048
     Dates: start: 20050418, end: 20060323
  2. EMTRIVA [Concomitant]
     Indication: HIV INFECTION
     Route: 048
     Dates: start: 20050418, end: 20060323
  3. LOPINAVIR [Concomitant]
     Indication: HIV INFECTION
     Route: 048
     Dates: start: 20030901
  4. RITONAVIR [Concomitant]
     Indication: HIV INFECTION
     Route: 048
     Dates: start: 20030901
  5. ZOPLICONE [Concomitant]
     Indication: SLEEP DISORDER
     Route: 048
     Dates: start: 20050301
  6. METHADONE HCL [Concomitant]
     Route: 048
     Dates: start: 19980101
  7. SPIRONOLACTONE [Concomitant]
     Indication: OEDEMA
     Route: 048
     Dates: start: 20050701
  8. PREDNISON [Concomitant]
     Indication: THROMBOCYTOPENIA
     Route: 048
     Dates: start: 20060213, end: 20060419

REACTIONS (2)
  - OSTEOPOROSIS [None]
  - PELVIC FRACTURE [None]
